FAERS Safety Report 5672142-4 (Version None)
Quarter: 2008Q1

REPORT INFORMATION
  Report Type: 
  Country: None (occurrence: None)
  Receive Date: 20080319
  Receipt Date: 20080312
  Transmission Date: 20080703
  Serious: Yes (Hospitalization)
  Sender: FDA-Public Use
  Company Number: US-WYE-H03073808

PATIENT
  Sex: Male
  Weight: 77.18 kg

DRUGS (1)
  1. TIGECYCLINE [Suspect]
     Indication: CELLULITIS
     Route: 042
     Dates: start: 20080307

REACTIONS (1)
  - CLOSTRIDIUM DIFFICILE COLITIS [None]
